FAERS Safety Report 8585170-6 (Version None)
Quarter: 2012Q3

REPORT INFORMATION
  Report Type: 
  Country: None (occurrence: None)
  Receive Date: 20120810
  Receipt Date: 20120802
  Transmission Date: 20120928
  Serious: Yes (Other)
  Sender: FDA-Public Use
  Company Number: PHHY2012BR062311

PATIENT

DRUGS (3)
  1. PROGRAF [Concomitant]
  2. PREDNISONE TAB [Concomitant]
  3. MYFORTIC [Suspect]
     Dosage: UNK UKN, UNK
     Route: 048

REACTIONS (1)
  - INAPPROPRIATE SCHEDULE OF DRUG ADMINISTRATION [None]
